FAERS Safety Report 7699885-5 (Version None)
Quarter: 2011Q3

REPORT INFORMATION
  Report Type: 
  Country: None (occurrence: None)
  Receive Date: 20110816
  Receipt Date: 20110811
  Transmission Date: 20111222
  Serious: Yes (Other)
  Sender: FDA-Public Use
  Company Number: 201110708

PATIENT
  Age: 54 Year
  Sex: Female

DRUGS (2)
  1. LIORESAL [Suspect]
     Indication: MUSCLE SPASTICITY
     Dosage: 550.1 MCG, DAILY, INTRATHECAL
     Route: 037
  2. MORPHINE [Concomitant]

REACTIONS (5)
  - FALL [None]
  - ANEURYSM RUPTURED [None]
  - DEVICE POWER SOURCE ISSUE [None]
  - DEVICE BATTERY ISSUE [None]
  - MUSCLE SPASTICITY [None]
